FAERS Safety Report 5867076-6 (Version None)
Quarter: 2008Q3

REPORT INFORMATION
  Report Type: 
  Country: None (occurrence: None)
  Receive Date: 20080902
  Receipt Date: 20080827
  Transmission Date: 20090109
  Serious: Yes (Other)
  Sender: FDA-Public Use
  Company Number: B0534570A

PATIENT
  Age: 67 Year
  Sex: Male

DRUGS (4)
  1. VALTREX [Suspect]
     Indication: HERPES ZOSTER
     Dosage: 1000MG THREE TIMES PER DAY
     Route: 048
     Dates: start: 20080806, end: 20080808
  2. AMLODIPINE BESYLATE [Concomitant]
     Dosage: 2.5MG TWICE PER DAY
     Route: 048
  3. HARNAL [Concomitant]
     Dosage: .2MG PER DAY
     Route: 048
  4. CARDENALIN [Concomitant]
     Dosage: 1MG PER DAY
     Route: 048

REACTIONS (1)
  - APHASIA [None]
